FAERS Safety Report 7852883-0 (Version None)
Quarter: 2011Q4

REPORT INFORMATION
  Report Type: 
  Country: None (occurrence: None)
  Receive Date: 20111026
  Receipt Date: 20111017
  Transmission Date: 20120403
  Serious: Yes (Other)
  Sender: FDA-Public Use
  Company Number: NO-TEVA-303351ISR

PATIENT

DRUGS (11)
  1. PROCARBAZINE HYDROCHLORIDE [Suspect]
     Indication: HODGKIN'S DISEASE
     Route: 048
  2. NEUPOGEN [Suspect]
     Indication: HODGKIN'S DISEASE
  3. DOXORUBICIN HCL [Suspect]
     Route: 042
  4. CYCLOPHOSPHAMIDE [Suspect]
     Route: 042
  5. CYCLOPHOSPHAMIDE [Suspect]
     Indication: HODGKIN'S DISEASE
     Route: 042
  6. ETOPOSIDE [Suspect]
     Indication: HODGKIN'S DISEASE
     Route: 042
  7. ETOPOSIDE [Suspect]
     Route: 042
  8. BLEOMYCIN SULFATE [Suspect]
     Indication: HODGKIN'S DISEASE
     Route: 042
  9. DOXORUBICIN HCL [Suspect]
     Indication: HODGKIN'S DISEASE
     Route: 042
  10. VINCRISTINE [Suspect]
     Indication: HODGKIN'S DISEASE
     Route: 042
  11. PREDNISOLONE [Suspect]
     Indication: HODGKIN'S DISEASE
     Route: 048

REACTIONS (1)
  - HERPES ZOSTER [None]
